FAERS Safety Report 4767660-7 (Version None)
Quarter: 2005Q3

REPORT INFORMATION
  Report Type: 
  Country: None (occurrence: None)
  Receive Date: 20050912
  Receipt Date: 20050830
  Transmission Date: 20060218
  Serious: Yes (Other)
  Sender: FDA-Public Use
  Company Number: 2005122740

PATIENT
  Age: 51 Year
  Sex: Male
  Weight: 83.9154 kg

DRUGS (3)
  1. VIAGRA [Suspect]
     Indication: ERECTILE DYSFUNCTION
     Dosage: (100 MG,)
     Dates: start: 20010101, end: 20050801
  2. LIPITOR [Concomitant]
  3. ENALAPRIL MALEATE [Concomitant]

REACTIONS (3)
  - OPTIC ISCHAEMIC NEUROPATHY [None]
  - VISION BLURRED [None]
  - VISUAL DISTURBANCE [None]
